FAERS Safety Report 5188284-6 (Version None)
Quarter: 2006Q4

REPORT INFORMATION
  Report Type: 
  Country: None (occurrence: None)
  Receive Date: 20061221
  Receipt Date: 20061218
  Transmission Date: 20070319
  Serious: Yes (Hospitalization)
  Sender: FDA-Public Use
  Company Number: JP-JPN-A200605447

PATIENT
  Age: 29 Year
  Sex: Male

DRUGS (2)
  1. COMBIVIR [Suspect]
     Indication: ACQUIRED IMMUNODEFICIENCY SYNDROME
     Dosage: 2TAB PER DAY
     Route: 048
     Dates: start: 20040315
  2. KALETRA [Suspect]
     Indication: ACQUIRED IMMUNODEFICIENCY SYNDROME
     Dosage: 6CAP PER DAY
     Route: 048
     Dates: start: 20040315

REACTIONS (1)
  - HERPES ZOSTER [None]
